FAERS Safety Report 5155003-9 (Version None)
Quarter: 2006Q4

REPORT INFORMATION
  Report Type: 
  Country: None (occurrence: None)
  Receive Date: 20061120
  Receipt Date: 20061120
  Transmission Date: 20070319
  Serious: Yes (Death, Disabling)
  Sender: FDA-Public Use
  Company Number: None

PATIENT
  Age: 77 Year
  Sex: Male
  Weight: 74 kg

DRUGS (2)
  1. ACTIVASE [Suspect]
     Indication: CEREBROVASCULAR ACCIDENT
     Dosage: 7 MG BOLUS X 1 IV
     Route: 042
     Dates: start: 20061106
  2. ACTIVASE [Suspect]
     Dosage: 65 MG OVER ONE HOUR

REACTIONS (1)
  - HAEMORRHAGE INTRACRANIAL [None]
